FAERS Safety Report 18646978 (Version 1)
Quarter: 2020Q4

REPORT INFORMATION
  Report Type: Report from Study
  Country: US (occurrence: US)
  Receive Date: 20201222
  Receipt Date: 20201222
  Transmission Date: 20210114
  Serious: No
  Sender: FDA-Public Use
  Company Number: US-ACADIA PHARMACEUTICALS INC.-ACA-2020-PIM-003837

PATIENT
  Age: 84 Year
  Sex: Female

DRUGS (3)
  1. NUPLAZID [Suspect]
     Active Substance: PIMAVANSERIN TARTRATE
     Indication: DEMENTIA ALZHEIMER^S TYPE
  2. NUPLAZID [Suspect]
     Active Substance: PIMAVANSERIN TARTRATE
     Indication: DEMENTIA
     Dosage: 34 MILLIGRAM, QD
     Route: 048
     Dates: start: 20200909
  3. NUPLAZID [Suspect]
     Active Substance: PIMAVANSERIN TARTRATE
     Indication: BEHAVIOUR DISORDER

REACTIONS (2)
  - Hallucination [Unknown]
  - Off label use [Unknown]

NARRATIVE: CASE EVENT DATE: 20200909
